FAERS Safety Report 8995304 (Version 1)
Quarter: 2013Q1

REPORT INFORMATION
  Report Type: Report from Study
  Country: ES (occurrence: ES)
  Receive Date: 20130103
  Receipt Date: 20130103
  Transmission Date: 20140127
  Serious: Yes (Hospitalization)
  Sender: FDA-Public Use
  Company Number: ES-CELGENEUS-144-50794-11123291

PATIENT
  Age: 80 Year
  Sex: Male

DRUGS (4)
  1. VIDAZA [Suspect]
     Indication: ACUTE MYELOID LEUKAEMIA
     Dosage: 144 MILLIGRAM
     Route: 041
     Dates: start: 20100629, end: 20110207
  2. ONDANSETRON [Concomitant]
     Indication: ANTIEMETIC SUPPORTIVE CARE
     Dosage: 8 MILLIGRAM
     Route: 065
     Dates: start: 20100629, end: 20110207
  3. G-CSF [Concomitant]
     Indication: NEUTROPENIA
     Dosage: 48 MILLIGRAM
     Route: 065
     Dates: start: 20100706, end: 20110207
  4. ITRACONAZOL [Concomitant]
     Indication: ANTIFUNGAL PROPHYLAXIS
     Dosage: 150 MILLIGRAM
     Route: 065
     Dates: start: 20100630, end: 20110207

REACTIONS (4)
  - Abdominal distension [Recovered/Resolved]
  - Oedema [Recovered/Resolved]
  - Asthenia [Recovered/Resolved]
  - Bacteraemia [Recovered/Resolved]
